FAERS Safety Report 9173829 (Version 1)
Quarter: 2013Q1

REPORT INFORMATION
  Report Type: Spontaneous
  Country: IT (occurrence: IT)
  Receive Date: 20130320
  Receipt Date: 20130320
  Transmission Date: 20140127
  Serious: Yes (Hospitalization)
  Sender: FDA-Public Use
  Company Number: IT-COVIDIEN/TYCO HEALTHCARE/MALLINCKRODT-T201301318

PATIENT
  Age: 39 Year
  Sex: Female
  Weight: 63 kg

DRUGS (2)
  1. EXALGO EXTENDED RELEASE [Suspect]
     Indication: BACK PAIN
     Dosage: UNK
     Route: 048
     Dates: start: 20110204, end: 20110204
  2. DUROGESIC [Suspect]
     Indication: BACK PAIN
     Dosage: UNK
     Route: 062
     Dates: start: 20100202, end: 20100203

REACTIONS (2)
  - Anaphylactic shock [Unknown]
  - Hallucination [Unknown]
